FAERS Safety Report 12037165 (Version 1)
Quarter: 2016Q1

REPORT INFORMATION
  Report Type: Report from Study
  Country: US (occurrence: US)
  Receive Date: 20160208
  Receipt Date: 20160208
  Transmission Date: 20160526
  Serious: Yes (Hospitalization)
  Sender: FDA-Public Use
  Company Number: US-ROCHE-1704875

PATIENT
  Age: 69 Year

DRUGS (5)
  1. METHOTREXATE [Suspect]
     Active Substance: METHOTREXATE
     Indication: SQUAMOUS CELL CARCINOMA OF HEAD AND NECK
     Route: 065
  2. DIFLUCAN [Concomitant]
     Active Substance: FLUCONAZOLE
  3. BEVACIZUMAB [Suspect]
     Active Substance: BEVACIZUMAB
     Indication: SQUAMOUS CELL CARCINOMA OF HEAD AND NECK
     Dosage: ON DAY 1?DATE OF LAST DOSE PRIOR TO SAE: 04/MAY/2004
     Route: 042
     Dates: start: 20040420
  4. ERLOTINIB [Suspect]
     Active Substance: ERLOTINIB
     Indication: SQUAMOUS CELL CARCINOMA OF HEAD AND NECK
     Dosage: DATE OF LAST DOSE PRIOR TO SAE: 14/MAY/2004
     Route: 048
     Dates: start: 20040420
  5. ACYCLOVIR. [Concomitant]
     Active Substance: ACYCLOVIR

REACTIONS (1)
  - Oesophagitis [Unknown]

NARRATIVE: CASE EVENT DATE: 20040514
